FAERS Safety Report 6734544-4 (Version None)
Quarter: 2010Q2

REPORT INFORMATION
  Report Type: 
  Country: None (occurrence: None)
  Receive Date: 20100520
  Receipt Date: 20100514
  Transmission Date: 20101027
  Serious: Yes (Hospitalization, Disabling)
  Sender: FDA-Public Use
  Company Number: US-ROCHE-531431

PATIENT
  Sex: Male
  Weight: 114.2 kg

DRUGS (10)
  1. PEGASYS [Suspect]
     Indication: HEPATITIS C
     Dosage: AFTER SIX WEEKS OF INITIAL THERAPY, PEGASYS/RIBAVIRIN TREATMENT DISCONTINUED FOR ABOUT WEEK AND HAL+
     Route: 065
     Dates: start: 20041106, end: 20041201
  2. PEGASYS [Suspect]
     Dosage: AFTER SIX WEEKS OF INITIAL THERAPY, PEGASYS/RIBAVIRIN TREATMENT DISCONTINUED FOR ABOUT WEEK AND HAL+
     Route: 065
     Dates: start: 20041201, end: 20051028
  3. PEGASYS [Suspect]
     Dosage: DOSE REDUCED
     Route: 065
     Dates: end: 20051101
  4. RIBAVIRIN [Suspect]
     Indication: HEPATITIS C
     Dosage: AFTER SIX WEEKS OF INITIAL THERAPY, PEGASYS/RIBAVIRIN TREATMENT DISCONTINUED FOR ABOUT WEEK AND HAL+
     Route: 048
     Dates: start: 20041106, end: 20041201
  5. RIBAVIRIN [Suspect]
     Dosage: AFTER SIX WEEKS OF INITIAL THERAPY, PEGASYS/RIBAVIRIN TREATMENT DISCONTINUED FOR ABOUT WEEK AND HAL+
     Route: 048
     Dates: start: 20041201, end: 20051028
  6. RIBAVIRIN [Suspect]
     Dosage: DOSE REDUCED
     Route: 048
     Dates: end: 20051101
  7. EPOGEN [Concomitant]
     Route: 058
  8. LISINOPRIL [Concomitant]
  9. METOPROLOL TARTRATE [Concomitant]
  10. MINOXIDIL [Concomitant]

REACTIONS (23)
  - ALOPECIA [None]
  - ANAEMIA [None]
  - ARTHRALGIA [None]
  - BLOOD CREATININE INCREASED [None]
  - CONSTIPATION [None]
  - DECREASED INTEREST [None]
  - DEPRESSION [None]
  - DRY EYE [None]
  - DRY SKIN [None]
  - FATIGUE [None]
  - HEART RATE DECREASED [None]
  - LIBIDO DECREASED [None]
  - MADAROSIS [None]
  - MEMORY IMPAIRMENT [None]
  - MENTAL IMPAIRMENT [None]
  - MYALGIA [None]
  - NEUROPATHY PERIPHERAL [None]
  - NEUTROPENIA [None]
  - PAIN [None]
  - POOR QUALITY SLEEP [None]
  - PRURITUS [None]
  - TEMPERATURE INTOLERANCE [None]
  - WEIGHT ABNORMAL [None]
